FAERS Safety Report 5357391-7 (Version None)
Quarter: 2007Q2

REPORT INFORMATION
  Report Type: 
  Country: None (occurrence: None)
  Receive Date: 20070612
  Receipt Date: 20070612
  Transmission Date: 20071010
  Serious: Yes (Hospitalization)
  Sender: FDA-Public Use
  Company Number: None

PATIENT
  Age: 53 Year
  Sex: Female
  Weight: 113.3993 kg

DRUGS (2)
  1. PIROXICAM [Suspect]
     Indication: ARTHRITIS
     Dosage: 1 CAPSULE EVERY DAY PO
     Route: 048
     Dates: start: 20070527, end: 20070601
  2. PIROXICAM [Suspect]
     Indication: BACK PAIN
     Dosage: 1 CAPSULE EVERY DAY PO
     Route: 048
     Dates: start: 20070527, end: 20070601

REACTIONS (6)
  - DIZZINESS [None]
  - DYSPEPSIA [None]
  - FEELING ABNORMAL [None]
  - HEART RATE INCREASED [None]
  - MYOCARDIAL INFARCTION [None]
  - PARAESTHESIA [None]
